FAERS Safety Report 5182912-7 (Version None)
Quarter: 2006Q4

REPORT INFORMATION
  Report Type: 
  Country: None (occurrence: None)
  Receive Date: 20061220
  Receipt Date: 20061128
  Transmission Date: 20070319
  Serious: Yes (Hospitalization)
  Sender: FDA-Public Use
  Company Number: JP-SANOFI-SYNTHELABO-A01200610392

PATIENT
  Age: 76 Year
  Sex: Female

DRUGS (6)
  1. AMIODARONE HYDROCHLORIDE [Concomitant]
     Indication: DRUG USE FOR UNKNOWN INDICATION
     Dosage: UNK
     Route: 065
  2. DIGOXIN [Concomitant]
     Indication: DRUG USE FOR UNKNOWN INDICATION
     Dosage: UNK
     Route: 065
  3. MYSLEE [Suspect]
     Indication: SUICIDE ATTEMPT
     Route: 048
  4. MYSLEE [Suspect]
     Indication: INSOMNIA
     Route: 048
  5. MYSLEE [Suspect]
     Route: 048
  6. MYSLEE [Suspect]
     Route: 048

REACTIONS (3)
  - BLOOD POTASSIUM INCREASED [None]
  - BRADYCARDIA [None]
  - MULTIPLE DRUG OVERDOSE [None]
